FAERS Safety Report 6515317-4 (Version None)
Quarter: 2009Q4

REPORT INFORMATION
  Report Type: 
  Country: None (occurrence: None)
  Receive Date: 20091223
  Receipt Date: 20091216
  Transmission Date: 20100525
  Serious: Yes (Hospitalization)
  Sender: FDA-Public Use
  Company Number: BR-ROCHE-664160

PATIENT
  Age: 56 Year
  Sex: Male

DRUGS (2)
  1. TAMIFLU [Suspect]
     Indication: H1N1 INFLUENZA
     Route: 048
     Dates: start: 20091006, end: 20091011
  2. TAMIFLU [Suspect]
     Route: 048
     Dates: start: 20091020

REACTIONS (7)
  - ARTHRALGIA [None]
  - CHILLS [None]
  - CONJUNCTIVITIS [None]
  - DYSPNOEA [None]
  - HEADACHE [None]
  - MYALGIA [None]
  - PYREXIA [None]
